FAERS Safety Report 20171510 (Version 1)
Quarter: 2021Q4

REPORT INFORMATION
  Report Type: Spontaneous
  Country: US (occurrence: None)
  Receive Date: 20211209
  Receipt Date: 20211209
  Transmission Date: 20220303
  Serious: Yes (Other)
  Sender: FDA-Public Use
  Company Number: None

PATIENT
  Age: 64 Year
  Sex: Male
  Weight: 140 kg

DRUGS (22)
  1. VICTOZA [Suspect]
     Active Substance: LIRAGLUTIDE
     Indication: Type 2 diabetes mellitus
     Dosage: FREQUENCY : DAILY;?
     Route: 058
     Dates: start: 20210528, end: 20210626
  2. Albuterol 90 mcg/act Inhaler [Concomitant]
     Dates: start: 20180216
  3. APIXABAN [Concomitant]
     Active Substance: APIXABAN
     Dates: start: 20180212
  4. ATORVASTATIN [Concomitant]
     Active Substance: ATORVASTATIN
     Dates: start: 20130212
  5. BUPROPION [Concomitant]
     Active Substance: BUPROPION
     Dates: start: 20180123
  6. BUPROPION [Concomitant]
     Active Substance: BUPROPION
     Dates: start: 20170608
  7. JARDIANCE [Concomitant]
     Active Substance: EMPAGLIFLOZIN
     Dates: start: 20170622
  8. GABAPENTIN [Concomitant]
     Active Substance: GABAPENTIN
     Dates: start: 20121207
  9. Insulin Aspart FlexPen 100 unit/mL [Concomitant]
     Dates: start: 20121207
  10. Insulin Detemir 100 unit/mL [Concomitant]
     Dates: start: 20130114
  11. METFORMIN [Concomitant]
     Active Substance: METFORMIN HYDROCHLORIDE
     Dates: start: 20121207
  12. Metoprolol succinate XL 100 mg [Concomitant]
     Dates: start: 20180212
  13. Mometasone-Formoterol (Dulera) 200-5 mcg/act Inhaler [Concomitant]
     Dates: start: 20201110
  14. MUPIROCIN [Concomitant]
     Active Substance: MUPIROCIN
     Dates: start: 20210617
  15. Potassium chloride CR 20 MEQ ER [Concomitant]
     Dates: start: 20160115
  16. Sacubitril-Valsartan (Entresto) 97-103 mg [Concomitant]
     Dates: start: 20200430
  17. SILDENAFIL [Concomitant]
     Active Substance: SILDENAFIL
     Dates: start: 20150312
  18. Sulfamethoxazole-trimethoprim 800-160 mg [Concomitant]
  19. Tiotropium (Spiriva HandiHaler) 18 mcg inhalation capsule [Concomitant]
     Dates: start: 20191107
  20. Torsemide 20 mg [Concomitant]
     Dates: start: 20210401
  21. TRAMADOL [Concomitant]
     Active Substance: TRAMADOL
  22. Cholecalciferol 50 mcg (2000 IU) [Concomitant]
     Dates: start: 20210530

REACTIONS (4)
  - Nausea [None]
  - Abdominal distension [None]
  - Abdominal pain [None]
  - Lipase increased [None]

NARRATIVE: CASE EVENT DATE: 20210701
